FAERS Safety Report 4442045-1 (Version None)
Quarter: 2004Q3

REPORT INFORMATION
  Report Type: 
  Country: None (occurrence: None)
  Receive Date: 20040901
  Receipt Date: 20040727
  Transmission Date: 20050211
  Serious: Yes (Death)
  Sender: FDA-Public Use
  Company Number: HQWYE539328JUL04

PATIENT
  Age: 63 Year
  Sex: Male

DRUGS (3)
  1. GEMTUZUMAB OZOGAMICIN (GEMTUZUMAB OZOGAMICIN, INJECTION) [Suspect]
     Indication: ACUTE MYELOID LEUKAEMIA
     Dosage: 9 MG/SQM, FOR 1 CYCLE
  2. ACETAMINOPHEN [Concomitant]
  3. UNSPECIFIED ANTIHISTAMINE (UNSPECIFIED ANTIHISTAMINE)` [Concomitant]

REACTIONS (2)
  - CEREBRAL HAEMORRHAGE [None]
  - PLATELET DISORDER [None]
